FAERS Safety Report 23371409 (Version 1)
Quarter: 2024Q1

REPORT INFORMATION
  Report Type: Spontaneous
  Country: CH (occurrence: None)
  Receive Date: 20240105
  Receipt Date: 20240105
  Transmission Date: 20240410
  Serious: Yes (Other)
  Sender: FDA-Public Use
  Company Number: 2024A003014

PATIENT
  Age: 68 Year
  Sex: Female
  Weight: 85.1 kg

DRUGS (30)
  1. QUETIAPINE [Suspect]
     Active Substance: QUETIAPINE
     Dosage: BID
     Dates: start: 20231117
  2. VALPROATE SODIUM [Suspect]
     Active Substance: VALPROATE SODIUM
     Dosage: TID
  3. LITHIUM [Suspect]
     Active Substance: LITHIUM
  4. CLARITHROMYCIN [Suspect]
     Active Substance: CLARITHROMYCIN
     Route: 048
     Dates: start: 20231117, end: 20231119
  5. PREGABALIN [Suspect]
     Active Substance: PREGABALIN
  6. PREGABALIN [Suspect]
     Active Substance: PREGABALIN
  7. LYRICA [Suspect]
     Active Substance: PREGABALIN
  8. VENLAFAXINE [Suspect]
     Active Substance: VENLAFAXINE HYDROCHLORIDE
  9. QUETIAPINE FUMARATE [Suspect]
     Active Substance: QUETIAPINE FUMARATE
     Dosage: AS NECESSARY75.0MG INTERMITTENT
  10. QUETIAPINE FUMARATE [Suspect]
     Active Substance: QUETIAPINE FUMARATE
     Dosage: AS NECESSARY250.0MG INTERMITTENT
  11. QUETIAPINE FUMARATE [Suspect]
     Active Substance: QUETIAPINE FUMARATE
     Dosage: AS NECESSARY25.0MG INTERMITTENT
     Dates: start: 20231117
  12. MAPROTILINE [Suspect]
     Active Substance: MAPROTILINE
  13. REMERON [Suspect]
     Active Substance: MIRTAZAPINE
  14. LAMOTRIGINE [Suspect]
     Active Substance: LAMOTRIGINE
  15. ESCITALOPRAM [Suspect]
     Active Substance: ESCITALOPRAM OXALATE
  16. XANAX [Suspect]
     Active Substance: ALPRAZOLAM
  17. BUPROPION [Suspect]
     Active Substance: BUPROPION
  18. AMOXICILLIN\CLAVULANATE POTASSIUM [Concomitant]
     Active Substance: AMOXICILLIN\CLAVULANATE POTASSIUM
     Dates: start: 20231117, end: 20231122
  19. PANTOPRAZOLE SODIUM [Concomitant]
     Active Substance: PANTOPRAZOLE SODIUM
  20. EUTHYROX [Concomitant]
     Active Substance: LEVOTHYROXINE SODIUM
     Dosage: 75 MICROGRAMS PER INHALATION
  21. FOLIC ACID [Concomitant]
     Active Substance: FOLIC ACID
  22. VITAMIN D3 [Concomitant]
     Active Substance: CHOLECALCIFEROL
  23. DAFALGAN [Concomitant]
     Active Substance: ACETAMINOPHEN
     Dosage: 500.0MG INTERMITTENT
     Dates: start: 20231117
  24. LAXIPEG [Concomitant]
     Dates: start: 20231117
  25. VALVERDE SCHLAF [Concomitant]
     Dosage: INTERMITTENT
     Dates: start: 20231117
  26. ONDANSETRON [Concomitant]
     Active Substance: ONDANSETRON
     Dates: start: 20231118
  27. PAROXETINE [Concomitant]
     Active Substance: PAROXETINE
  28. CHLORPROTHIXENE [Concomitant]
     Active Substance: CHLORPROTHIXENE
  29. TRIMIPRAMINUM [Concomitant]
  30. BRINTELLIX [Concomitant]
     Active Substance: VORTIOXETINE HYDROBROMIDE

REACTIONS (2)
  - Liver disorder [Recovering/Resolving]
  - Tremor [Not Recovered/Not Resolved]

NARRATIVE: CASE EVENT DATE: 20231120
